FAERS Safety Report 7611086-5 (Version None)
Quarter: 2011Q3

REPORT INFORMATION
  Report Type: 
  Country: None (occurrence: None)
  Receive Date: 20110715
  Receipt Date: 20110712
  Transmission Date: 20111222
  Serious: No
  Sender: FDA-Public Use
  Company Number: US-TEVA-288010USA

PATIENT
  Sex: Female
  Weight: 108.96 kg

DRUGS (2)
  1. PLAN B ONE-STEP [Suspect]
     Indication: POST COITAL CONTRACEPTION
     Dosage: 1.5 MILLIGRAM;
     Route: 048
  2. ANTIHYPERTENSIVE DRUG [Concomitant]
     Indication: HYPERTENSION
     Route: 048

REACTIONS (1)
  - MENSTRUATION DELAYED [None]
